FAERS Safety Report 9996314 (Version 2)
Quarter: 2014Q1

REPORT INFORMATION
  Report Type: Spontaneous
  Country: DE (occurrence: DE)
  Receive Date: 20140311
  Receipt Date: 20140311
  Transmission Date: 20141002
  Serious: Yes (Hospitalization, Other)
  Sender: FDA-Public Use
  Company Number: DE-CELGENEUS-062-21880-13093453

PATIENT
  Age: 66 Year
  Sex: Female
  Weight: 104 kg

DRUGS (13)
  1. REVLIMID [Suspect]
     Indication: PLASMA CELL MYELOMA
     Dosage: 25 MILLIGRAM
     Route: 048
     Dates: start: 20130618, end: 20130625
  2. REVLIMID [Suspect]
     Dosage: 15 MILLIGRAM
     Route: 048
     Dates: start: 20130806, end: 20130818
  3. REVLIMID [Suspect]
     Dosage: 10 MILLIGRAM
     Route: 048
     Dates: start: 20130903, end: 20130910
  4. REVLIMID [Suspect]
     Route: 048
     Dates: end: 20130920
  5. DEXAMETHASONE [Suspect]
     Indication: PLASMA CELL MYELOMA
     Dosage: 40 MILLIGRAM
     Route: 048
     Dates: start: 20130618, end: 20130917
  6. DEXAMETHASONE [Suspect]
     Route: 065
     Dates: end: 20130920
  7. PEGFILGRASTIM [Suspect]
     Indication: PLASMA CELL MYELOMA
     Dosage: 6 MILLIGRAM
     Route: 058
     Dates: start: 20130808, end: 20130905
  8. PEGFILGRASTIM [Suspect]
     Route: 065
     Dates: end: 20130920
  9. BENDAMUSTINE [Suspect]
     Indication: PLASMA CELL MYELOMA
     Dosage: 165 MILLIGRAM
     Route: 041
     Dates: start: 20130618, end: 20130903
  10. BENDAMUSTINE [Suspect]
     Route: 065
     Dates: end: 20130920
  11. BENDAMUSTINE [Suspect]
     Dosage: 132.5 MILLIGRAM
     Route: 041
     Dates: start: 20130806
  12. RED BLOOD CELLS [Concomitant]
     Indication: PRODUCT USED FOR UNKNOWN INDICATION
     Dosage: X4
     Route: 065
     Dates: start: 20130920, end: 20130920
  13. RED BLOOD CELLS [Concomitant]
     Dosage: X4
     Route: 065
     Dates: start: 20130923, end: 20130923

REACTIONS (6)
  - Pancytopenia [Recovered/Resolved]
  - Staphylococcal sepsis [Recovered/Resolved]
  - Neutropenia [Recovered/Resolved]
  - Thrombocytopenia [Recovered/Resolved]
  - Leukopenia [Recovered/Resolved]
  - Catheter management [Recovered/Resolved]
